FAERS Safety Report 8990071 (Version 1)
Quarter: 2012Q4

REPORT INFORMATION
  Report Type: 
  Country: US (occurrence: US)
  Receive Date: 20121228
  Receipt Date: 20121228
  Transmission Date: 20130627
  Serious: No
  Sender: FDA-Public Use
  Company Number: US-BAYER-2012-135507

PATIENT
  Age: 79 Year
  Sex: Female
  Weight: 66 kg

DRUGS (5)
  1. ALEVE CAPLET/TABLET,MIDOL EXTENDED RELIEF CAPLET [Suspect]
     Indication: PAIN NOS
     Dosage: UNK, PRN
  2. WELCHOL [Concomitant]
     Indication: CHOLESTEROL TOTAL ABNORMAL NOS
  3. MELOXICAM [Concomitant]
  4. CELEBREX [Suspect]
  5. CALCIUM [Concomitant]
     Dosage: UNK

REACTIONS (1)
  - Drug ineffective [None]
